FAERS Safety Report 9391923 (Version 1)
Quarter: 2013Q3

REPORT INFORMATION
  Report Type: Spontaneous
  Country: PL (occurrence: None)
  Receive Date: 20130705
  Receipt Date: 20130705
  Transmission Date: 20140515
  Serious: Yes (Hospitalization)
  Sender: FDA-Public Use
  Company Number: PL-008034

PATIENT
  Age: 85 Year
  Sex: Female
  Weight: 59.5 kg

DRUGS (1)
  1. CHLORAMBUCIL (CHLORAMBUCIL) (UNKNOWN) [Suspect]
     Indication: CHRONIC LYMPHOCYTIC LEUKAEMIA
     Dosage: 10 MG/M2 AT DAYS 1 - 7 EVERY 28 DAYS, ORAL
     Route: 048
     Dates: start: 20091216

REACTIONS (1)
  - Haemolytic anaemia [None]
